FAERS Safety Report 7030879-9 (Version None)
Quarter: 2010Q4

REPORT INFORMATION
  Report Type: 
  Country: None (occurrence: None)
  Receive Date: 20101006
  Receipt Date: 20101005
  Transmission Date: 20110411
  Serious: Yes (Hospitalization, Other)
  Sender: FDA-Public Use
  Company Number: FI-BRISTOL-MYERS SQUIBB COMPANY-15317944

PATIENT
  Age: 35 Year
  Sex: Male

DRUGS (2)
  1. ABILIFY [Suspect]
     Dosage: TEMPORARILY DISCONTINUED ON SEP2010
  2. KETIPINOR [Concomitant]

REACTIONS (1)
  - PULMONARY EMBOLISM [None]
